FAERS Safety Report 6722216-1 (Version None)
Quarter: 2010Q2

REPORT INFORMATION
  Report Type: 
  Country: None (occurrence: None)
  Receive Date: 20100512
  Receipt Date: 20100428
  Transmission Date: 20101027
  Serious: Yes (Other)
  Sender: FDA-Public Use
  Company Number: US-ELI_LILLY_AND_COMPANY-US201003000184

PATIENT
  Sex: Female

DRUGS (15)
  1. CYMBALTA [Suspect]
     Indication: FIBROMYALGIA
     Dates: start: 20080101, end: 20090901
  2. NIFEDIPINE [Concomitant]
  3. LISINOPRIL [Concomitant]
  4. PILOCARPINE HYDROCHLORIDE [Concomitant]
  5. GAVISCON /00902401/ [Concomitant]
  6. SYNTHROID [Concomitant]
  7. CLONAZEPAM [Concomitant]
  8. FLECTOR /00372302/ [Concomitant]
  9. ESTROGEN NOS [Concomitant]
  10. NEXIUM [Concomitant]
  11. LOTEMAX [Concomitant]
  12. PREDNISONE [Concomitant]
  13. ZOLOFT [Concomitant]
  14. AMITRIPTLINE HYDROCHLORIDE TAB [Concomitant]
  15. MAXALT /USA/ [Concomitant]

REACTIONS (5)
  - DYSPHAGIA [None]
  - HIATUS HERNIA [None]
  - MIGRAINE [None]
  - OESOPHAGEAL ULCER [None]
  - SCLERODERMA [None]
